FAERS Safety Report 20139069 (Version 1)
Quarter: 2021Q4

REPORT INFORMATION
  Report Type: Spontaneous
  Country: FR (occurrence: FR)
  Receive Date: 20211202
  Receipt Date: 20211202
  Transmission Date: 20220303
  Serious: Yes (Hospitalization)
  Sender: FDA-Public Use
  Company Number: None

PATIENT
  Age: 4 Year
  Sex: Male
  Weight: 17.6 kg

DRUGS (2)
  1. TACROLIMUS [Suspect]
     Active Substance: TACROLIMUS
     Indication: Liver transplant
     Dosage: 2 TIMES PER DAY
     Route: 048
     Dates: start: 202103
  2. ZOVIRAX [Suspect]
     Active Substance: ACYCLOVIR
     Indication: Liver transplant
     Dosage: STRENGTH: 800 MG / 10 ML, ORAL SUSPENSION IN A VIAL, 3 TIMES PER DAY
     Route: 048
     Dates: start: 202104

REACTIONS (3)
  - Haemolytic uraemic syndrome [Recovering/Resolving]
  - Product administration error [Unknown]
  - Incorrect dosage administered [Unknown]

NARRATIVE: CASE EVENT DATE: 20210401
